FAERS Safety Report 4289903-9 (Version None)
Quarter: 2004Q1

REPORT INFORMATION
  Report Type: 
  Country: None (occurrence: None)
  Receive Date: 20040206
  Receipt Date: 20040128
  Transmission Date: 20041129
  Serious: Yes (Hospitalization, Other)
  Sender: FDA-Public Use
  Company Number: ES-JNJFOC-20040200030

PATIENT
  Sex: Male

DRUGS (2)
  1. REMICADE [Suspect]
     Indication: RHEUMATOID ARTHRITIS
     Dosage: 3 MG/KG, INTRAVENOUS
     Route: 042
     Dates: start: 20011201, end: 20031201
  2. METHOTREXATE [Concomitant]

REACTIONS (4)
  - ARTHRITIS BACTERIAL [None]
  - BONE TUBERCULOSIS [None]
  - ESCHERICHIA INFECTION [None]
  - MYCOBACTERIA BLOOD TEST POSITIVE [None]
